FAERS Safety Report 8479420-4 (Version None)
Quarter: 2012Q2

REPORT INFORMATION
  Report Type: 
  Country: None (occurrence: None)
  Receive Date: 20120629
  Receipt Date: 20120621
  Transmission Date: 20120825
  Serious: Yes (Other)
  Sender: FDA-Public Use
  Company Number: US-JNJFOC-20120613541

PATIENT

DRUGS (8)
  1. AZATHIOPRINE [Suspect]
     Indication: HISTOPLASMOSIS
     Route: 065
  2. AMPHOTERICIN B [Suspect]
     Indication: HISTOPLASMOSIS
     Route: 065
  3. CYCLOSPORINE [Suspect]
     Indication: HISTOPLASMOSIS
     Route: 065
  4. MYCOPHENOLATE MOFETIL [Suspect]
     Indication: HISTOPLASMOSIS
     Route: 065
  5. SIROLIMUS [Suspect]
     Indication: HISTOPLASMOSIS
     Route: 065
  6. ITRACONAZOLE [Suspect]
     Indication: HISTOPLASMOSIS
     Route: 048
  7. TACROLIMUS [Suspect]
     Indication: HISTOPLASMOSIS
     Route: 065
  8. CORTICOSTEROIDS [Suspect]
     Indication: HISTOPLASMOSIS
     Route: 065

REACTIONS (2)
  - GASTROINTESTINAL DISORDER [None]
  - DRUG INTOLERANCE [None]
